FAERS Safety Report 15454822 (Version 2)
Quarter: 2018Q4

REPORT INFORMATION
  Report Type: Spontaneous
  Country: JP (occurrence: JP)
  Receive Date: 20181002
  Receipt Date: 20181012
  Transmission Date: 20190204
  Serious: Yes (Other)
  Sender: FDA-Public Use
  Company Number: JP-AMGEN-JPNSP2018136149

PATIENT
  Sex: Female

DRUGS (1)
  1. ENBREL [Suspect]
     Active Substance: ETANERCEPT
     Indication: PRODUCT USED FOR UNKNOWN INDICATION
     Dosage: UNK, WEEKLY
     Route: 065
     Dates: start: 20180330

REACTIONS (5)
  - Productive cough [Unknown]
  - Weight increased [Unknown]
  - Hyperhidrosis [Unknown]
  - Blood pressure increased [Not Recovered/Not Resolved]
  - Malaise [Unknown]
